FAERS Safety Report 7206331-4 (Version None)
Quarter: 2011Q1

REPORT INFORMATION
  Report Type: 
  Country: None (occurrence: None)
  Receive Date: 20110103
  Receipt Date: 20110103
  Transmission Date: 20110831
  Serious: Yes (Hospitalization)
  Sender: FDA-Public Use
  Company Number: PHHO2008BE06269

PATIENT
  Sex: Male

DRUGS (4)
  1. PLACEBO [Suspect]
     Indication: CARCINOID TUMOUR
     Dosage: PLACEBO
     Route: 048
     Dates: start: 20070416, end: 20071002
  2. SANDOSTATIN LAR [Suspect]
     Indication: CARCINOID TUMOUR
     Dosage: DOUBLE BLIND
     Dates: start: 20070427
  3. INSULIN [Concomitant]
  4. RAD001 [Suspect]
     Indication: CARCINOID TUMOUR
     Dosage: UNK, UNK
     Route: 048
     Dates: start: 20071010, end: 20080508

REACTIONS (6)
  - DYSPNOEA [None]
  - BLOOD CREATININE INCREASED [None]
  - OEDEMA PERIPHERAL [None]
  - ASTHENIA [None]
  - DEPRESSION [None]
  - GENERAL PHYSICAL HEALTH DETERIORATION [None]
